FAERS Safety Report 15761347 (Version 1)
Quarter: 2018Q4

REPORT INFORMATION
  Report Type: Spontaneous
  Country: US (occurrence: US)
  Receive Date: 20181207
  Receipt Date: 20181207
  Transmission Date: 20190205
  Serious: Yes (Other)
  Sender: FDA-Public Use
  Company Number: None

PATIENT
  Age: 46 Year
  Sex: Female
  Weight: 96.75 kg

DRUGS (11)
  1. HYDROCHLOROTHIAZIDE\VALSARTAN [Suspect]
     Active Substance: HYDROCHLOROTHIAZIDE\VALSARTAN
     Indication: HYPERTENSION
     Route: 048
  2. LISINOPRIL. [Suspect]
     Active Substance: LISINOPRIL
     Indication: HYPERTENSION
     Dosage: ?          OTHER STRENGTH:25;QUANTITY:1 TABLET(S);?
     Route: 048
  3. ANTACID [Concomitant]
     Active Substance: ALUMINUM HYDROXIDE\CALCIUM CARBONATE\DIMETHICONE\MAGNESIUM HYDROXIDE
  4. ZYRTEC [Concomitant]
     Active Substance: CETIRIZINE HYDROCHLORIDE
  5. VITAMIN E [Concomitant]
     Active Substance: .ALPHA.-TOCOPHEROL
  6. VITAMIN C [Concomitant]
     Active Substance: ASCORBIC ACID
  7. DRY EYE DROPS [Concomitant]
  8. POTASSIUM [Concomitant]
     Active Substance: POTASSIUM
  9. FLUID PILL [Concomitant]
  10. VITAMIN D [Concomitant]
     Active Substance: CHOLECALCIFEROL
  11. EDARBLYCLOR [Concomitant]

REACTIONS (9)
  - Hypersensitivity [None]
  - Gastric disorder [None]
  - Fatigue [None]
  - Dry mouth [None]
  - Fluid retention [None]
  - Malaise [None]
  - Swelling [None]
  - Palpitations [None]
  - Oropharyngeal pain [None]

NARRATIVE: CASE EVENT DATE: 20140814
